FAERS Safety Report 20013754 (Version 1)
Quarter: 2021Q4

REPORT INFORMATION
  Report Type: Spontaneous
  Country: US (occurrence: US)
  Receive Date: 20211029
  Receipt Date: 20211029
  Transmission Date: 20220303
  Serious: Yes (Life-Threatening, Other)
  Sender: FDA-Public Use
  Company Number: 2021A785643

PATIENT
  Age: 75 Year
  Sex: Male
  Weight: 96.2 kg

DRUGS (3)
  1. BYETTA [Suspect]
     Active Substance: EXENATIDE
     Indication: Diabetes mellitus
     Route: 058
     Dates: end: 2021
  2. NITROGLYCERIN [Concomitant]
     Active Substance: NITROGLYCERIN
     Indication: Angina pectoris
  3. INSULIN NOS [Concomitant]
     Active Substance: INSULIN NOS
     Indication: Angina pectoris

REACTIONS (8)
  - Shock hypoglycaemic [Recovered/Resolved]
  - Atrioventricular block [Recovering/Resolving]
  - Angina pectoris [Recovered/Resolved]
  - Arterial rupture [Recovering/Resolving]
  - Movement disorder [Recovered/Resolved]
  - Dyspnoea [Recovered/Resolved]
  - Weight decreased [Not Recovered/Not Resolved]
  - Body height decreased [Not Recovered/Not Resolved]

NARRATIVE: CASE EVENT DATE: 20210101
